FAERS Safety Report 9055196 (Version 3)
Quarter: 2013Q1

REPORT INFORMATION
  Report Type: Spontaneous
  Country: US (occurrence: US)
  Receive Date: 20130206
  Receipt Date: 20130311
  Transmission Date: 20140127
  Serious: No
  Sender: FDA-Public Use
  Company Number: US-PFIZER INC-2013045245

PATIENT
  Age: 42 Year
  Sex: Female
  Weight: 144 kg

DRUGS (15)
  1. SUTENT [Suspect]
     Indication: PANCREATIC CARCINOMA
     Dosage: 25 MG, 1X/DAY
     Dates: start: 201211
  2. LASIX [Concomitant]
     Indication: LOCAL SWELLING
     Dosage: 40 MG, 2X/DAY
  3. COLACE [Concomitant]
     Dosage: UNK
  4. PRILOSEC [Concomitant]
     Indication: ABDOMINAL DISCOMFORT
     Dosage: 20 MG, 1X/DAY
  5. ATIVAN [Concomitant]
     Indication: NAUSEA
     Dosage: 1 MG, 3X/DAY
  6. MORPHINE HYDROCHLORIDE [Concomitant]
     Indication: PAIN
     Dosage: 60 MG, 3X/DAY
  7. MORPHINE HYDROCHLORIDE [Concomitant]
     Dosage: 60 MG, 2X/DAY
  8. MORPHINE HYDROCHLORIDE [Concomitant]
     Dosage: 120 MG, 3X/DAY
  9. PREDNISONE [Concomitant]
     Dosage: UNK
  10. REGLAN [Concomitant]
     Indication: NAUSEA
     Dosage: 10 MG, 4X/DAY
  11. PHENERGAN [Concomitant]
     Indication: NAUSEA
     Dosage: 25 MG, 3X/DAY
  12. ZOFRAN [Concomitant]
     Indication: NAUSEA
     Dosage: 8 MG, 3X/DAY
  13. BENADRYL [Concomitant]
     Indication: NAUSEA
     Dosage: 50 MG, 3X/DAY
     Route: 048
  14. HALDOL [Concomitant]
  15. HALOPERIDOL [Concomitant]
     Indication: NAUSEA
     Dosage: 1 MG, 3X/DAY

REACTIONS (10)
  - Eyelash discolouration [Unknown]
  - Fall [Unknown]
  - Pain [Not Recovered/Not Resolved]
  - Hair colour changes [Unknown]
  - Skin discolouration [Unknown]
  - Alopecia [Unknown]
  - Dizziness [Unknown]
  - Fatigue [Unknown]
  - Asthenia [Unknown]
  - Pyrexia [Recovered/Resolved]
